FAERS Safety Report 5922094-4 (Version None)
Quarter: 2008Q3

REPORT INFORMATION
  Report Type: 
  Country: None (occurrence: None)
  Receive Date: 20080909
  Receipt Date: 20080627
  Transmission Date: 20090109
  Serious: Yes (Hospitalization, Other)
  Sender: FDA-Public Use
  Company Number: 163-20785-08061034

PATIENT
  Age: 60 Year
  Sex: Female

DRUGS (2)
  1. THALOMID [Suspect]
     Indication: MULTIPLE MYELOMA
     Dosage: 100 MG, 1 IN 1 D, ORAL
     Route: 048
     Dates: start: 20080526, end: 20080608
  2. DEXAMETHASONE TAB [Concomitant]

REACTIONS (5)
  - CONFUSIONAL STATE [None]
  - DEEP VEIN THROMBOSIS [None]
  - DIPLOPIA [None]
  - HEMIPARESIS [None]
  - TRANSIENT ISCHAEMIC ATTACK [None]
